FAERS Safety Report 8763165 (Version 2)
Quarter: 2012Q4

REPORT INFORMATION
  Report Type: Report from Study
  Country: CA (occurrence: CA)
  Receive Date: 20120831
  Receipt Date: 20121018
  Transmission Date: 20130627
  Serious: Yes (Hospitalization)
  Sender: FDA-Public Use
  Company Number: CA-JNJFOC-20120812742

PATIENT
  Age: 27 Year
  Sex: Male
  Weight: 50 kg

DRUGS (6)
  1. REMICADE [Suspect]
     Indication: COLITIS ULCERATIVE
     Route: 042
     Dates: start: 2010
  2. CIPRO [Concomitant]
     Route: 048
  3. CIPRO [Concomitant]
     Route: 048
     Dates: end: 20120819
  4. MACROBID (NITROFURANTOIN) [Concomitant]
     Route: 065
  5. PREDNISONE [Concomitant]
     Route: 048
  6. PREDNISONE [Concomitant]
     Route: 048

REACTIONS (1)
  - Nephrolithiasis [Recovered/Resolved]
